FAERS Safety Report 10497333 (Version 1)
Quarter: 2014Q4

REPORT INFORMATION
  Report Type: Spontaneous
  Country: CA (occurrence: CA)
  Receive Date: 20141006
  Receipt Date: 20141006
  Transmission Date: 20150528
  Serious: Yes (Other)
  Sender: FDA-Public Use
  Company Number: PHHY2014CA129357

PATIENT
  Age: 37 Year
  Sex: Female

DRUGS (3)
  1. EXJADE [Suspect]
     Active Substance: DEFERASIROX
     Dosage: UNK
     Dates: start: 2008, end: 2013
  2. DESFERAL [Suspect]
     Active Substance: DEFEROXAMINE MESYLATE
     Dosage: UNK
     Dates: end: 1998
  3. EXJADE [Suspect]
     Active Substance: DEFERASIROX
     Dosage: UNK

REACTIONS (4)
  - Frustration [Unknown]
  - Blood iron increased [Unknown]
  - Cholelithiasis [Unknown]
  - Malaise [Unknown]

NARRATIVE: CASE EVENT DATE: 1995
